FAERS Safety Report 9463681 (Version 4)
Quarter: 2014Q1

REPORT INFORMATION
  Report Type: Report from Study
  Country: TR (occurrence: TR)
  Receive Date: 20130819
  Receipt Date: 20140303
  Transmission Date: 20141002
  Serious: Yes (Death, Hospitalization)
  Sender: FDA-Public Use
  Company Number: PHHY2013TR088607

PATIENT
  Age: 65 Year
  Sex: Female
  Weight: 85 kg

DRUGS (4)
  1. SANDOSTATIN LAR [Suspect]
     Indication: NEUROENDOCRINE TUMOUR
     Dosage: 30 MG, ONCE EVERY 28 DAYS
     Route: 030
     Dates: start: 20100420, end: 20140220
  2. NORVASC [Concomitant]
     Indication: HYPERTENSION
     Dosage: 10 MG, UNK
  3. AFINITOR [Concomitant]
     Indication: NEOPLASM MALIGNANT
     Dosage: 10 MG, UNK
  4. AFINITOR [Concomitant]
     Indication: NEUROENDOCRINE TUMOUR

REACTIONS (10)
  - Generalised oedema [Fatal]
  - Pulmonary oedema [Fatal]
  - Pericardial effusion [Fatal]
  - Hypoglycaemia [Fatal]
  - Blood glucose decreased [Fatal]
  - Dizziness [Fatal]
  - Loss of consciousness [Unknown]
  - Boredom [Unknown]
  - Dyspnoea [Not Recovered/Not Resolved]
  - Blood glucose fluctuation [Unknown]
